FAERS Safety Report 8312216-2 (Version None)
Quarter: 2012Q2

REPORT INFORMATION
  Report Type: 
  Country: None (occurrence: None)
  Receive Date: 20120425
  Receipt Date: 20120411
  Transmission Date: 20120825
  Serious: Yes (Other)
  Sender: FDA-Public Use
  Company Number: CHPA2012US009211

PATIENT
  Sex: Female

DRUGS (5)
  1. CODEINE SYRUP [Concomitant]
     Route: 048
  2. ANACIN                             /00141001/ [Concomitant]
     Indication: PAIN
     Dosage: 1 DF, Q4H
     Route: 048
  3. IBUPROFEN [Concomitant]
     Route: 048
  4. EXCEDRIN EXTRA STRENGTH TABLETS [Suspect]
     Indication: BACK PAIN
     Dosage: 1 DF, QD
     Dates: start: 20110101
  5. EXCEDRIN EXTRA STRENGTH TABLETS [Suspect]
     Dosage: 2 DF, Q6H
     Route: 048

REACTIONS (3)
  - INTERVERTEBRAL DISC PROTRUSION [None]
  - BACK INJURY [None]
  - UNDERDOSE [None]
